FAERS Safety Report 8597861-1 (Version None)
Quarter: 2012Q3

REPORT INFORMATION
  Report Type: 
  Country: None (occurrence: None)
  Receive Date: 20120816
  Receipt Date: 20120815
  Transmission Date: 20120928
  Serious: Yes (Death)
  Sender: FDA-Public Use
  Company Number: PHHY2012NL070343

PATIENT
  Sex: Male

DRUGS (3)
  1. ZOMETA [Suspect]
     Dosage: 4 MG/100 ML, 1 PER 28 DAYS
     Route: 042
     Dates: start: 20120629
  2. ZOMETA [Suspect]
     Dosage: 4 MG/100 ML, 1 PER 28 DAYS
     Route: 042
     Dates: start: 20120727
  3. ZOMETA [Suspect]
     Indication: PROSTATE CANCER METASTATIC
     Dosage: 4 MG/100 ML, 1 PER 28 DAYS
     Route: 042
     Dates: start: 20110712

REACTIONS (1)
  - DEATH [None]
